FAERS Safety Report 7092939-6 (Version None)
Quarter: 2010Q4

REPORT INFORMATION
  Report Type: 
  Country: None (occurrence: None)
  Receive Date: 20101110
  Receipt Date: 20101105
  Transmission Date: 20110411
  Serious: Yes (Other)
  Sender: FDA-Public Use
  Company Number: US-PFIZER INC-2010141855

PATIENT
  Sex: Male
  Weight: 125 kg

DRUGS (2)
  1. CHANTIX [Suspect]
     Dosage: 1 MG, 2X/DAY
     Dates: start: 20100901, end: 20101105
  2. LYRICA [Concomitant]
     Dosage: UNK

REACTIONS (3)
  - AGGRESSION [None]
  - IRRITABILITY [None]
  - SUICIDAL IDEATION [None]
